FAERS Safety Report 9510160 (Version 2)
Quarter: 2013Q3

REPORT INFORMATION
  Report Type: Spontaneous
  Country: US (occurrence: US)
  Receive Date: 20130909
  Receipt Date: 20130909
  Transmission Date: 20140515
  Serious: No
  Sender: FDA-Public Use
  Company Number: US-BRISTOL-MYERS SQUIBB COMPANY-18732669

PATIENT
  Age: 18 Year
  Sex: Male

DRUGS (3)
  1. ABILIFY TABS 5 MG [Suspect]
     Indication: ATTENTION DEFICIT/HYPERACTIVITY DISORDER
     Dosage: 1DF:1/2 A TABLET
  2. ABILIFY TABS 5 MG [Suspect]
     Indication: ANXIETY
     Dosage: 1DF:1/2 A TABLET
  3. COGENTIN [Concomitant]

REACTIONS (3)
  - Joint stiffness [Unknown]
  - Constipation [Unknown]
  - Product packaging quantity issue [Unknown]
